FAERS Safety Report 11646158 (Version 1)
Quarter: 2015Q4

REPORT INFORMATION
  Report Type: Spontaneous
  Country: CN (occurrence: CN)
  Receive Date: 20151020
  Receipt Date: 20151020
  Transmission Date: 20160304
  Serious: Yes (Hospitalization, Other)
  Sender: FDA-Public Use
  Company Number: CN-GILEAD-2015-0177815

PATIENT
  Age: 35 Year
  Sex: Male

DRUGS (1)
  1. HEPSERA [Suspect]
     Active Substance: ADEFOVIR DIPIVOXIL
     Indication: HEPATITIS B
     Route: 065

REACTIONS (8)
  - Back pain [Recovered/Resolved]
  - Blood alkaline phosphatase increased [Unknown]
  - Blood creatine increased [Recovered/Resolved]
  - Urine phosphorus increased [Unknown]
  - Blood phosphorus decreased [Recovered/Resolved]
  - Bone density decreased [Recovered/Resolved]
  - Abasia [Recovered/Resolved]
  - Bone pain [Recovered/Resolved]
